FAERS Safety Report 12519165 (Version 1)
Quarter: 2016Q2

REPORT INFORMATION
  Report Type: Report from Study
  Country: VN (occurrence: VN)
  Receive Date: 20160630
  Receipt Date: 20160630
  Transmission Date: 20160815
  Serious: Yes (Hospitalization, Other)
  Sender: FDA-Public Use
  Company Number: VN-009507513-1606VNM012596

PATIENT
  Age: 69 Year
  Sex: Female

DRUGS (1)
  1. COZAAR [Suspect]
     Active Substance: LOSARTAN POTASSIUM
     Dosage: ONE 50 MG TABLET IN THE MORNING
     Route: 048
     Dates: start: 20140501

REACTIONS (5)
  - Blood pressure abnormal [Recovering/Resolving]
  - Epistaxis [Recovering/Resolving]
  - Peripheral swelling [Not Recovered/Not Resolved]
  - Cerebrovascular accident [Recovering/Resolving]
  - Asthenia [Recovering/Resolving]

NARRATIVE: CASE EVENT DATE: 20160110
